FAERS Safety Report 21271519 (Version 1)
Quarter: 2022Q3

REPORT INFORMATION
  Report Type: Spontaneous
  Country: CN (occurrence: CN)
  Receive Date: 20220830
  Receipt Date: 20220830
  Transmission Date: 20221027
  Serious: Yes (Hospitalization, Other)
  Sender: FDA-Public Use
  Company Number: CN-009507513-2208CHN010895

PATIENT
  Age: 61 Year
  Sex: Female
  Weight: 62.5 kg

DRUGS (3)
  1. JANUVIA [Suspect]
     Active Substance: SITAGLIPTIN PHOSPHATE
     Indication: Blood glucose abnormal
     Dosage: 100 MILLIGRAM, QD
     Route: 048
     Dates: start: 20220714, end: 20220814
  2. JANUVIA [Suspect]
     Active Substance: SITAGLIPTIN PHOSPHATE
     Indication: Type 2 diabetes mellitus
  3. METFORMIN [Suspect]
     Active Substance: METFORMIN HYDROCHLORIDE
     Indication: Type 2 diabetes mellitus
     Dosage: 0.5 GRAM, BID
     Route: 048
     Dates: start: 20220714, end: 20220814

REACTIONS (6)
  - Ascites [Recovering/Resolving]
  - Abnormal faeces [Recovering/Resolving]
  - Faeces discoloured [Recovering/Resolving]
  - Gastrointestinal pain [Recovering/Resolving]
  - Abdominal pain lower [Recovering/Resolving]
  - Diarrhoea [Recovering/Resolving]

NARRATIVE: CASE EVENT DATE: 20220714
